FAERS Safety Report 25382054 (Version 4)
Quarter: 2025Q3

REPORT INFORMATION
  Report Type: Spontaneous
  Country: US (occurrence: US)
  Receive Date: 20250531
  Receipt Date: 20250926
  Transmission Date: 20251020
  Serious: No
  Sender: UNITED THERAPEUTICS
  Company Number: US-UNITED THERAPEUTICS-UNT-2025-015890

PATIENT
  Age: 76 Year
  Sex: Female

DRUGS (9)
  1. TYVASO DPI [Suspect]
     Active Substance: TREPROSTINIL
     Indication: Pulmonary arterial hypertension
     Dosage: 64 ?G, QID
  2. TYVASO DPI [Suspect]
     Active Substance: TREPROSTINIL
     Indication: Interstitial lung disease
     Dosage: 64 ?G, TID
  3. TYVASO DPI [Suspect]
     Active Substance: TREPROSTINIL
     Dosage: 64 ?G, QID
  4. TYVASO DPI [Suspect]
     Active Substance: TREPROSTINIL
  5. TYVASO DPI [Suspect]
     Active Substance: TREPROSTINIL
     Indication: Pulmonary arterial hypertension
  6. TYVASO DPI [Suspect]
     Active Substance: TREPROSTINIL
     Indication: Interstitial lung disease
  7. SILDENAFIL [Concomitant]
     Active Substance: SILDENAFIL
     Indication: Catheterisation cardiac abnormal
  8. SILDENAFIL [Concomitant]
     Active Substance: SILDENAFIL
  9. OPSUMIT [Concomitant]
     Active Substance: MACITENTAN
     Indication: Product used for unknown indication

REACTIONS (11)
  - Dyspnoea [Not Recovered/Not Resolved]
  - Decreased activity [Not Recovered/Not Resolved]
  - Cough [Not Recovered/Not Resolved]
  - Product after taste [Recovered/Resolved]
  - Lacrimation increased [Not Recovered/Not Resolved]
  - Catheterisation cardiac abnormal [Unknown]
  - Therapy non-responder [Unknown]
  - Product deposit [Recovered/Resolved]
  - Wrong technique in product usage process [Recovered/Resolved]
  - Inappropriate schedule of product administration [Recovered/Resolved]
  - Device use issue [Not Recovered/Not Resolved]

NARRATIVE: CASE EVENT DATE: 20241001
